FAERS Safety Report 6759964-3 (Version None)
Quarter: 2010Q2

REPORT INFORMATION
  Report Type: 
  Country: None (occurrence: None)
  Receive Date: 20100604
  Receipt Date: 20100520
  Transmission Date: 20101027
  Serious: Yes (Hospitalization)
  Sender: FDA-Public Use
  Company Number: CAP10000191

PATIENT
  Age: 72 Year
  Sex: Female

DRUGS (4)
  1. ACTONEL [Suspect]
     Indication: OSTEOPOROSIS
     Dosage: 35 MG ONCE WEEKLY, ORAL
     Route: 048
     Dates: start: 20050101
  2. MULTIVITAMIN /00831701/ (VITAMIN NOS) [Concomitant]
  3. CALCIUM W/MAGNESIUM/VITAMIN D (CALCIUM, MAGNESIUM, VITAMIN D NOS) [Concomitant]
  4. ERGOCALCIFEROL [Concomitant]

REACTIONS (3)
  - COELIAC DISEASE [None]
  - HYPERPARATHYROIDISM [None]
  - PARATHYROID TUMOUR BENIGN [None]
